FAERS Safety Report 6960026-0 (Version None)
Quarter: 2010Q3

REPORT INFORMATION
  Report Type: 
  Country: None (occurrence: None)
  Receive Date: 20100901
  Receipt Date: 20100819
  Transmission Date: 20110219
  Serious: No
  Sender: FDA-Public Use
  Company Number: US-BAYER-200910022NA

PATIENT
  Age: 20 Year
  Sex: Female

DRUGS (1)
  1. MIRENA [Suspect]
     Indication: CONTRACEPTION
     Dosage: CONTINUOUS
     Route: 015
     Dates: start: 20081106

REACTIONS (5)
  - ALOPECIA [None]
  - PREGNANCY WITH CONTRACEPTIVE DEVICE [None]
  - TRICHORRHEXIS [None]
  - VAGINAL HAEMORRHAGE [None]
  - VULVOVAGINAL PAIN [None]
